FAERS Safety Report 6393308-4 (Version None)
Quarter: 2009Q4

REPORT INFORMATION
  Report Type: 
  Country: None (occurrence: None)
  Receive Date: 20091008
  Receipt Date: 20091008
  Transmission Date: 20100525
  Serious: Yes (Hospitalization)
  Sender: FDA-Public Use
  Company Number: PHHO2008US09461

PATIENT
  Sex: Male
  Weight: 97 kg

DRUGS (6)
  1. ALISKIREN ALI+TAB+HT [Suspect]
     Indication: ESSENTIAL HYPERTENSION
     Dosage: 150 MG, QD
     Dates: start: 20080627
  2. HYDROCHLOROTHIAZIDE [Suspect]
     Dosage: UNK
  3. ASCORBIC ACID [Concomitant]
     Dosage: UNK
     Dates: start: 20070101
  4. POLICOSANOL [Concomitant]
     Dosage: UNK
     Dates: start: 20070101
  5. MEPROBAMAT [Concomitant]
  6. AFRIN [Concomitant]

REACTIONS (9)
  - CHILLS [None]
  - EYE PAIN [None]
  - HEADACHE [None]
  - HYPERTENSION [None]
  - LYMPH NODE PALPABLE [None]
  - OROPHARYNGEAL PAIN [None]
  - PYREXIA [None]
  - TINNITUS [None]
  - TYPE III IMMUNE COMPLEX MEDIATED REACTION [None]
